FAERS Safety Report 8045893-4 (Version None)
Quarter: 2012Q1

REPORT INFORMATION
  Report Type: 
  Country: None (occurrence: None)
  Receive Date: 20120113
  Receipt Date: 20120104
  Transmission Date: 20120608
  Serious: Yes (Hospitalization)
  Sender: FDA-Public Use
  Company Number: US-GLAXOSMITHKLINE-A0956926B

PATIENT
  Age: 71 Year
  Sex: Female
  Weight: 72.4 kg

DRUGS (2)
  1. LAPATINIB [Suspect]
  2. CETUXIMAB [Suspect]
     Indication: ANAL CANCER
     Dates: start: 20111109, end: 20111123

REACTIONS (1)
  - PAIN [None]
